FAERS Safety Report 16267830 (Version 6)
Quarter: 2021Q4

REPORT INFORMATION
  Report Type: Report from Study
  Country: FR (occurrence: FR)
  Receive Date: 20190503
  Receipt Date: 20211006
  Transmission Date: 20220303
  Serious: Yes (Death, Hospitalization)
  Sender: FDA-Public Use
  Company Number: FR-ROCHE-2309139

PATIENT
  Age: 62 Year
  Sex: Male
  Weight: 92 kg

DRUGS (24)
  1. PLACEBO [Suspect]
     Active Substance: UNSPECIFIED INGREDIENT
     Indication: Malignant melanoma
     Dosage: MOST RECENT DOSE OF PLACEBO : 28/MAR/2019.
     Route: 042
     Dates: start: 20180104
  2. VEMURAFENIB [Suspect]
     Active Substance: VEMURAFENIB
     Indication: Malignant melanoma
     Dosage: DATE OF MOST RECENT DOSE OF DOSE BLINDED VEMURAFENIB PRIOR TO ONSET OF ESOPHAGITIS WITH DECREASED HE
     Route: 048
     Dates: start: 20171207
  3. COBIMETINIB [Suspect]
     Active Substance: COBIMETINIB
     Indication: Metastatic malignant melanoma
     Dosage: DATE OF MOST RECENT DOSE OF COBIMETINIB PRIOR TO ONSET OF ESOPHAGITIS WITH DECREASED HEMOGLOBIN: 10/
     Route: 048
     Dates: start: 20171207
  4. LANTUS [Concomitant]
     Active Substance: INSULIN GLARGINE
     Indication: Diabetes mellitus
     Dates: start: 2009, end: 20190423
  5. METFORMIN HYDROCHLORIDE [Concomitant]
     Active Substance: METFORMIN HYDROCHLORIDE
     Indication: Diabetes mellitus
     Dates: start: 2009, end: 20201218
  6. NOVORAPID [Concomitant]
     Active Substance: INSULIN ASPART
     Indication: Diabetes mellitus
     Dates: start: 2009, end: 20190423
  7. IRBESARTAN [Concomitant]
     Active Substance: IRBESARTAN
     Indication: Hypertension
     Dates: start: 2014, end: 20191209
  8. TRAMADOL HYDROCHLORIDE [Concomitant]
     Active Substance: TRAMADOL HYDROCHLORIDE
     Indication: Pain
     Dates: start: 20171109, end: 20190831
  9. TRAMADOL [Concomitant]
     Active Substance: TRAMADOL
     Indication: Pain
     Dates: start: 20171109, end: 20190831
  10. ECONAZOLE. [Concomitant]
     Active Substance: ECONAZOLE NITRATE
     Indication: Intertrigo
     Dates: start: 20171109
  11. PHLOROGLUCINOL [Concomitant]
     Active Substance: PHLOROGLUCINOL
     Indication: Pain
     Dates: start: 20170926
  12. POLYETHYLENE GLYCOL 4000 [Concomitant]
     Active Substance: POLYETHYLENE GLYCOL 4000
     Indication: Functional gastrointestinal disorder
     Dates: start: 20170926, end: 20191007
  13. POTASSIUM CHLORIDE [Concomitant]
     Active Substance: POTASSIUM CHLORIDE
     Indication: Hypokalaemia
     Dates: start: 20180104
  14. TAHOR [Concomitant]
     Active Substance: ATORVASTATIN CALCIUM
     Indication: Hypertension
     Dates: start: 20180611, end: 20201218
  15. MAGNE B6 [Concomitant]
     Active Substance: MAGNESIUM\PYRIDOXINE
     Indication: Hypomagnesaemia
     Dates: start: 20180816
  16. NERISONE [Concomitant]
     Active Substance: DIFLUCORTOLONE VALERATE
     Indication: Prurigo
     Route: 061
     Dates: start: 20180830, end: 20201218
  17. CARBIMAZOLE [Concomitant]
     Active Substance: CARBIMAZOLE
     Indication: Hyperthyroidism
     Route: 065
     Dates: start: 20180607
  18. CARBIMAZOLE [Concomitant]
     Active Substance: CARBIMAZOLE
     Route: 048
     Dates: start: 20190314, end: 20190705
  19. DIPROSONE [Concomitant]
     Active Substance: BETAMETHASONE DIPROPIONATE
     Indication: Prophylaxis
     Route: 061
     Dates: start: 20190314, end: 20201218
  20. AUGMENTIN [Concomitant]
     Active Substance: AMOXICILLIN\CLAVULANATE POTASSIUM
     Indication: Scar
     Dates: start: 20190423, end: 20190505
  21. PREDNISOLONE SODIUM METAZOATE [Concomitant]
     Active Substance: PREDNISOLONE SODIUM METAZOATE
     Indication: Pneumonia
     Route: 048
     Dates: start: 20190514, end: 20190620
  22. PREDNISOLONE SODIUM METAZOATE [Concomitant]
     Active Substance: PREDNISOLONE SODIUM METAZOATE
     Route: 048
     Dates: start: 20190621, end: 20190705
  23. TOUJEO [Concomitant]
     Active Substance: INSULIN GLARGINE
     Indication: Diabetes mellitus
     Dates: start: 20190424, end: 20201218
  24. FIASP [Concomitant]
     Active Substance: INSULIN ASPART
     Indication: Diabetes mellitus
     Dates: start: 20190424, end: 20201218

REACTIONS (1)
  - Oesophagitis haemorrhagic [Recovered/Resolved]

NARRATIVE: CASE EVENT DATE: 20190423
